FAERS Safety Report 9849077 (Version 2)
Quarter: 2014Q1

REPORT INFORMATION
  Report Type: Spontaneous
  Country: GB (occurrence: None)
  Receive Date: 20140124
  Receipt Date: 20140204
  Transmission Date: 20141002
  Serious: Yes (Hospitalization)
  Sender: FDA-Public Use
  Company Number: AUR-APL-2014-00552

PATIENT
  Age: 79 Year
  Sex: Female

DRUGS (14)
  1. RAMIPRIL [Suspect]
     Indication: HYPERTENSION
     Route: 048
     Dates: start: 20131101, end: 20131116
  2. ALENDRONIC ACID (ALENDRONIC ACID) [Concomitant]
  3. CALCICHEW D3 (LEKOVIT CA) [Concomitant]
  4. CO-CODAMOL (PANADEINE CO) [Concomitant]
  5. DOSULEPIN (DOSULEPIN) [Concomitant]
  6. GABAPENTIN (GABAPENTIN) [Concomitant]
  7. LEVOTHROXINE (LEVOTHYROXINE) [Concomitant]
  8. QUININE (QUININE) [Concomitant]
  9. SALBUTAMOL (SALBUTAMOL) [Concomitant]
  10. SERETIDE (SERETIDE) [Concomitant]
  11. SIMVASTATIN (SIMVASTATIN) [Concomitant]
  12. SPIRIVA (TIOTROPIUM BROMIDE) (TIOTROPIUM BROMIDE) [Concomitant]
  13. TEMAZEPAM (TEMAZEPAM) [Concomitant]
  14. UNIPHYLLIN CONTINUS (THEOPHYLLINE) [Concomitant]

REACTIONS (5)
  - Renal failure acute [None]
  - Pneumonia [None]
  - Dizziness [None]
  - Dizziness [None]
  - Medication error [None]
